FAERS Safety Report 9661045 (Version 3)
Quarter: 2013Q4

REPORT INFORMATION
  Report Type: Spontaneous
  Country: US (occurrence: US)
  Receive Date: 20131031
  Receipt Date: 20131118
  Transmission Date: 20140711
  Serious: No
  Sender: FDA-Public Use
  Company Number: US-PFIZER INC-2013310676

PATIENT
  Age: 6 Year
  Sex: Male
  Weight: 20.41 kg

DRUGS (4)
  1. QUILLIVANT XR [Suspect]
     Indication: ATTENTION DEFICIT/HYPERACTIVITY DISORDER
     Dosage: 2.5 ML, 1X/DAY
     Route: 048
     Dates: start: 20130716, end: 2013
  2. QUILLIVANT XR [Suspect]
     Dosage: 5 ML, 1X/DAY
     Route: 048
     Dates: start: 2013, end: 2013
  3. QUILLIVANT XR [Suspect]
     Dosage: 7.5 ML, 1X/DAY
     Route: 048
     Dates: start: 2013, end: 2013
  4. QUILLIVANT XR [Suspect]
     Dosage: 10 ML, 1X/DAY
     Route: 048
     Dates: start: 2013

REACTIONS (1)
  - Drug ineffective [Unknown]
